FAERS Safety Report 10310028 (Version 2)
Quarter: 2014Q3

REPORT INFORMATION
  Report Type: Report from Study
  Country: US (occurrence: US)
  Receive Date: 20140717
  Receipt Date: 20140717
  Transmission Date: 20150326
  Serious: Yes (Other)
  Sender: FDA-Public Use
  Company Number: PHEH2014US011712

PATIENT
  Sex: Female

DRUGS (1)
  1. GILENYA [Suspect]
     Active Substance: FINGOLIMOD HYDROCHLORIDE
     Route: 048

REACTIONS (12)
  - Head injury [Unknown]
  - Fall [Unknown]
  - Visual impairment [Unknown]
  - Limb injury [Unknown]
  - Fear [Unknown]
  - Dysgraphia [Unknown]
  - Bradyphrenia [Unknown]
  - Limb discomfort [Unknown]
  - Feeling abnormal [Unknown]
  - Multiple sclerosis relapse [Unknown]
  - Hypoaesthesia [Unknown]
  - Gait disturbance [Unknown]
